FAERS Safety Report 19849557 (Version 1)
Quarter: 2021Q3

REPORT INFORMATION
  Report Type: Spontaneous
  Country: DE (occurrence: DE)
  Receive Date: 20210918
  Receipt Date: 20210918
  Transmission Date: 20211014
  Serious: Yes (Other)
  Sender: FDA-Public Use
  Company Number: DE-AMGEN-DEUSP2021140287

PATIENT
  Age: 55 Year
  Sex: Female
  Weight: 54.5 kg

DRUGS (10)
  1. ZOFRAN [Concomitant]
     Active Substance: ONDANSETRON HYDROCHLORIDE
     Indication: ANTIEMETIC SUPPORTIVE CARE
     Dosage: 1?0?1, ON DAYS? 1,2,8,9,15,16
     Route: 048
  2. DARZALEX [Suspect]
     Active Substance: DARATUMUMAB
     Indication: PLASMA CELL MYELOMA
     Dosage: DAY?1,2 FIRST CYCLE
     Route: 042
     Dates: start: 20210617, end: 20210617
  3. DEXAMETHAZONE [Suspect]
     Active Substance: DEXAMETHASONE
     Indication: PLASMA CELL MYELOMA
     Dosage: DAY?1,2,8,9,15,16
     Route: 048
     Dates: start: 20210616
  4. TAVEGIL [CLEMASTINE] [Concomitant]
     Active Substance: CLEMASTINE
     Dosage: 0.5 HOUR BEFORE CHEMOTHERAPY
     Route: 042
  5. CARFILZOMIB [Suspect]
     Active Substance: CARFILZOMIB
     Indication: PLASMA CELL MYELOMA
     Dosage: DAY?1,2 OF CYCLE?1
     Route: 065
     Dates: start: 20210616
  6. PARACETAMOL [Concomitant]
     Active Substance: ACETAMINOPHEN
     Indication: INFLUENZA LIKE ILLNESS
     Dosage: 1 HOUR BEFORE CHEMOTHERAPY
     Route: 048
  7. COVID?19 VACCINE [Concomitant]
     Dosage: 2 DOSES, LAST DOSE ON 27?MAY?2021
     Route: 065
  8. SOSTRIL [RANITIDINE HYDROCHLORIDE] [Concomitant]
     Active Substance: RANITIDINE HYDROCHLORIDE
     Dosage: 0.5 HOUR BEFORE CHEMOTHERAPY
     Route: 042
  9. ALLOPURINOL. [Concomitant]
     Active Substance: ALLOPURINOL
     Indication: BLOOD URIC ACID INCREASED
     Dosage: 300 MILLIGRAM, QD
     Route: 048
  10. SOLU DECORTIN [Concomitant]
     Active Substance: PREDNISOLONE SODIUM SUCCINATE
     Dosage: 0.5 HOUR BEFORE CHEMOTHERAPY
     Route: 042

REACTIONS (11)
  - Rhinitis [Recovered/Resolved]
  - Diarrhoea [Unknown]
  - Infusion related reaction [Recovered/Resolved]
  - Fibrin D dimer increased [Unknown]
  - Laryngeal oedema [Recovered/Resolved]
  - Headache [Recovered/Resolved]
  - Atrial fibrillation [Unknown]
  - Eye movement disorder [Recovered/Resolved]
  - Chest discomfort [Recovered/Resolved]
  - Musculoskeletal chest pain [Recovered/Resolved]
  - Polyneuropathy [Unknown]

NARRATIVE: CASE EVENT DATE: 20210617
